FAERS Safety Report 14628479 (Version 1)
Quarter: 2018Q1

REPORT INFORMATION
  Report Type: Report from Study
  Country: DE (occurrence: DE)
  Receive Date: 20180312
  Receipt Date: 20180312
  Transmission Date: 20180509
  Serious: Yes (Other)
  Sender: FDA-Public Use
  Company Number: PHHY2018DE034950

PATIENT
  Age: 61 Year
  Sex: Female

DRUGS (1)
  1. ESTRAMON CONTI [Suspect]
     Active Substance: ESTRADIOL\NORETHINDRONE ACETATE
     Indication: PRODUCT USED FOR UNKNOWN INDICATION
     Dosage: 1 DF (30/95 UG), 24 HOURSE
     Route: 062

REACTIONS (1)
  - Postmenopausal haemorrhage [Unknown]
